FAERS Safety Report 20526095 (Version 1)
Quarter: 2022Q1

REPORT INFORMATION
  Report Type: Spontaneous
  Country: US (occurrence: US)
  Receive Date: 20220228
  Receipt Date: 20220228
  Transmission Date: 20220423
  Serious: No
  Sender: FDA-Public Use
  Company Number: US-SA-SAC20220223000574

PATIENT
  Age: 42 Year
  Sex: Female

DRUGS (9)
  1. DUPIXENT [Suspect]
     Active Substance: DUPILUMAB
     Indication: Rheumatoid arthritis
     Dosage: 200MG/1.14ML, QOW
     Route: 058
     Dates: start: 20220128
  2. ASPIRIN [Concomitant]
     Active Substance: ASPIRIN
     Indication: Rheumatoid arthritis
  3. ENBREL [Concomitant]
     Active Substance: ETANERCEPT
  4. LISINOPRIL [Concomitant]
     Active Substance: LISINOPRIL
  5. NAPROXEN [Concomitant]
     Active Substance: NAPROXEN
  6. NORVASC [Concomitant]
     Active Substance: AMLODIPINE BESYLATE
  7. TOBRAMYCIN [Concomitant]
     Active Substance: TOBRAMYCIN
  8. METOPROL RETARD [Concomitant]
  9. VANCOMYCIN [Concomitant]
     Active Substance: VANCOMYCIN

REACTIONS (5)
  - Infection [Not Recovered/Not Resolved]
  - Dyspnoea [Not Recovered/Not Resolved]
  - Fatigue [Not Recovered/Not Resolved]
  - Pain [Not Recovered/Not Resolved]
  - Product use in unapproved indication [Unknown]

NARRATIVE: CASE EVENT DATE: 20220101
